FAERS Safety Report 25102794 (Version 1)
Quarter: 2025Q1

REPORT INFORMATION
  Report Type: Spontaneous
  Country: JP (occurrence: None)
  Receive Date: 20250321
  Receipt Date: 20250321
  Transmission Date: 20250408
  Serious: Yes (Hospitalization, Other)
  Sender: NATCO PHARMA
  Company Number: JP-NATCOUSA-2025-NATCOUSA-000268

PATIENT
  Age: 31 Year
  Sex: Female

DRUGS (2)
  1. ERLOTINIB [Suspect]
     Active Substance: ERLOTINIB
     Indication: Non-small cell lung cancer stage IV
     Dosage: DOSE 150 MG/DAY AT 17 WEEKS OF GESTATION.
  2. ERLOTINIB [Suspect]
     Active Substance: ERLOTINIB
     Indication: Non-small cell lung cancer stage IV
     Dosage: RESTARTED THERAPY WITH ERLOTINIB 150 MG/DAY ON THE SECOND POSTPARTUM DAY

REACTIONS (3)
  - Oligohydramnios [Unknown]
  - Rash [Unknown]
  - Maternal exposure during pregnancy [Unknown]
